FAERS Safety Report 9542469 (Version 2)
Quarter: 2013Q3

REPORT INFORMATION
  Report Type: Spontaneous
  Country: US (occurrence: US)
  Receive Date: 20130923
  Receipt Date: 20130923
  Transmission Date: 20140515
  Serious: No
  Sender: FDA-Public Use
  Company Number: US-MYLANLABS-2013S1006516

PATIENT
  Age: 91 Year
  Sex: Female
  Weight: 52.62 kg

DRUGS (1)
  1. NITROGLYCERIN TRANSDERMAL SYSTEM [Suspect]
     Indication: ANGINA PECTORIS
     Dosage: CHANGED Q.D.
     Route: 062
     Dates: start: 201303

REACTIONS (1)
  - Application site pain [Recovered/Resolved]
